FAERS Safety Report 7935382-7 (Version None)
Quarter: 2011Q4

REPORT INFORMATION
  Report Type: 
  Country: None (occurrence: None)
  Receive Date: 20111122
  Receipt Date: 20111114
  Transmission Date: 20120403
  Serious: Yes (Disabling)
  Sender: FDA-Public Use
  Company Number: US-ABBOTT-11P-163-0876088-00

PATIENT
  Age: 22 Year
  Sex: Female

DRUGS (1)
  1. LUPRON DEPOT [Suspect]
     Indication: PRODUCT USED FOR UNKNOWN INDICATION
     Dates: end: 20050101

REACTIONS (6)
  - MALAISE [None]
  - FEELING ABNORMAL [None]
  - JOB DISSATISFACTION [None]
  - PAIN [None]
  - UNEVALUABLE EVENT [None]
  - MENTAL DISORDER [None]
